FAERS Safety Report 7732472-9 (Version None)
Quarter: 2011Q3

REPORT INFORMATION
  Report Type: 
  Country: None (occurrence: None)
  Receive Date: 20110906
  Receipt Date: 20110830
  Transmission Date: 20111222
  Serious: Yes (Death, Other)
  Sender: FDA-Public Use
  Company Number: US-ASTRAZENECA-2010SE50636

PATIENT
  Age: 54 Year
  Sex: Male

DRUGS (5)
  1. ASPIRIN [Concomitant]
  2. SEROQUEL [Suspect]
     Route: 048
     Dates: start: 20100501
  3. SEROQUEL [Suspect]
     Route: 048
     Dates: start: 20110629
  4. SEROQUEL [Suspect]
     Route: 048
     Dates: start: 20100501
  5. SEROQUEL [Suspect]
     Indication: ANXIETY
     Route: 048
     Dates: start: 20090101, end: 20100501

REACTIONS (5)
  - ALCOHOL DETOXIFICATION [None]
  - DRUG DOSE OMISSION [None]
  - WEIGHT INCREASED [None]
  - CARDIAC ARREST [None]
  - SLEEP DISORDER [None]
